FAERS Safety Report 9182688 (Version 1)
Quarter: 2012Q4

REPORT INFORMATION
  Report Type: 
  Country: AU (occurrence: AU)
  Receive Date: 20121030
  Receipt Date: 20121030
  Transmission Date: 20130627
  Serious: Yes (Other)
  Sender: FDA-Public Use
  Company Number: PHHY2012AU097148

PATIENT
  Age: 66 None
  Sex: Male

DRUGS (1)
  1. ACLASTA [Suspect]
     Dosage: 5 mg,
     Route: 042
     Dates: start: 20121025

REACTIONS (9)
  - Chest pain [Unknown]
  - Hypopnoea [Unknown]
  - Feeling abnormal [Unknown]
  - Micturition frequency decreased [Unknown]
  - Pelvic pain [Unknown]
  - Vertigo [Unknown]
  - Pain [Unknown]
  - Dyspepsia [Unknown]
  - Arthralgia [Unknown]
